FAERS Safety Report 4357015-1 (Version None)
Quarter: 2004Q2

REPORT INFORMATION
  Report Type: 
  Country: None (occurrence: None)
  Receive Date: 20040512
  Receipt Date: 20040428
  Transmission Date: 20050107
  Serious: Yes (Other)
  Sender: FDA-Public Use
  Company Number: PHEH2004US04713

PATIENT
  Age: 51 Year
  Sex: Female

DRUGS (2)
  1. AREDIA [Suspect]
     Indication: OSTEOPOROSIS
     Dosage: 60MG/Q3MOS
     Route: 042
     Dates: start: 20020101
  2. AREDIA [Suspect]
     Dosage: 90 MG /QMON
     Route: 042
     Dates: end: 20040101

REACTIONS (12)
  - ABASIA [None]
  - ACCIDENT AT WORK [None]
  - BACK PAIN [None]
  - BONE DENSITY INCREASED [None]
  - DIZZINESS [None]
  - FALL [None]
  - GENERAL PHYSICAL HEALTH DETERIORATION [None]
  - INFUSION RELATED REACTION [None]
  - INFUSION SITE REACTION [None]
  - INTERVERTEBRAL DISC PROTRUSION [None]
  - NAUSEA [None]
  - VOMITING [None]
